FAERS Safety Report 5563778-X (Version None)
Quarter: 2007Q4

REPORT INFORMATION
  Report Type: 
  Country: None (occurrence: None)
  Receive Date: 20071217
  Receipt Date: 20070803
  Transmission Date: 20080405
  Serious: No
  Sender: FDA-Public Use
  Company Number: US-ASTRAZENECA-2007UW18807

PATIENT
  Age: 40 Year
  Sex: Female
  Weight: 70.3 kg

DRUGS (1)
  1. CRESTOR [Suspect]
     Indication: DYSLIPIDAEMIA

REACTIONS (2)
  - HYPOTENSION [None]
  - SOMNOLENCE [None]
